FAERS Safety Report 18512393 (Version 1)
Quarter: 2020Q4

REPORT INFORMATION
  Report Type: Spontaneous
  Country: US (occurrence: US)
  Receive Date: 20201117
  Receipt Date: 20201117
  Transmission Date: 20210114
  Serious: Yes (Hospitalization, Other)
  Sender: FDA-Public Use
  Company Number: US-BAYER-2020-242869

PATIENT
  Age: 61 Year
  Sex: Female

DRUGS (2)
  1. PROTONIX [Concomitant]
     Active Substance: PANTOPRAZOLE SODIUM
     Dosage: UNK
     Dates: start: 20201030
  2. ACETYLSALICYLIC ACID + CAFFEINE [Suspect]
     Active Substance: ASPIRIN\CAFFEINE
     Indication: OSTEOARTHRITIS
     Dates: start: 202006, end: 20201029

REACTIONS (1)
  - Perforated ulcer [Not Recovered/Not Resolved]

NARRATIVE: CASE EVENT DATE: 20201029
